FAERS Safety Report 11190726 (Version 1)
Quarter: 2015Q2

REPORT INFORMATION
  Report Type: Spontaneous
  Country: US (occurrence: US)
  Receive Date: 20150615
  Receipt Date: 20150615
  Transmission Date: 20150821
  Serious: No
  Sender: FDA-Public Use
  Company Number: US-PFIZER INC-2015196854

PATIENT
  Age: 70 Year
  Sex: Male

DRUGS (2)
  1. CELEBREX [Suspect]
     Active Substance: CELECOXIB
     Dosage: UNK
  2. BUMEX [Suspect]
     Active Substance: BUMETANIDE
     Dosage: UNK

REACTIONS (1)
  - Drug hypersensitivity [Unknown]
